FAERS Safety Report 11603209 (Version 1)
Quarter: 2015Q4

REPORT INFORMATION
  Report Type: Report from Study
  Country: US (occurrence: US)
  Receive Date: 20151006
  Receipt Date: 20151006
  Transmission Date: 20160304
  Serious: No
  Sender: FDA-Public Use
  Company Number: US-AMGEN-USASL2015096785

PATIENT
  Age: 65 Year
  Sex: Female

DRUGS (1)
  1. PROLIA [Suspect]
     Active Substance: DENOSUMAB
     Indication: OSTEOPOROSIS
     Dosage: 60 MG, UNK
     Route: 065
     Dates: start: 20150327

REACTIONS (12)
  - Rash pruritic [Unknown]
  - Rash erythematous [Unknown]
  - Arthralgia [Unknown]
  - Swelling [Unknown]
  - Palpitations [Unknown]
  - Oropharyngeal pain [Unknown]
  - Vomiting [Unknown]
  - Mobility decreased [Unknown]
  - Decreased appetite [Unknown]
  - Bone pain [Unknown]
  - Rash [Unknown]
  - Adverse drug reaction [Unknown]
